FAERS Safety Report 11337419 (Version 1)
Quarter: 2015Q3

REPORT INFORMATION
  Report Type: Spontaneous
  Country: US (occurrence: US)
  Receive Date: 20150803
  Receipt Date: 20150803
  Transmission Date: 20151125
  Serious: No
  Sender: FDA-Public Use
  Company Number: US-ELI_LILLY_AND_COMPANY-US200906002694

PATIENT
  Sex: Female

DRUGS (20)
  1. OLANZAPINE. [Suspect]
     Active Substance: OLANZAPINE
     Dosage: 20 MG, EACH EVENING
     Dates: start: 19990902
  2. AMOXICILLIN. [Concomitant]
     Active Substance: AMOXICILLIN
     Indication: INFECTION
     Dosage: 250 MG, 3/D
     Dates: start: 20010420
  3. SEROQUEL [Concomitant]
     Active Substance: QUETIAPINE FUMARATE
     Dosage: 200 MG, EACH MORNING
     Dates: start: 20030205
  4. HYDROCHLOROTHIAZIDE. [Concomitant]
     Active Substance: HYDROCHLOROTHIAZIDE
     Dosage: 25 MG, EACH MORNING
     Dates: start: 20030218
  5. OLANZAPINE. [Suspect]
     Active Substance: OLANZAPINE
     Dosage: 10 MG, EACH EVENING
     Dates: start: 19981213
  6. ACETAMINOPHEN AND CODEINE [Concomitant]
     Active Substance: ACETAMINOPHEN\CODEINE PHOSPHATE
     Indication: PAIN
     Dosage: 1 D/F, EVERY 4 HRS
     Dates: start: 20010713
  7. PHENTERMINE. [Concomitant]
     Active Substance: PHENTERMINE
     Dosage: 30 MG, EACH MORNING
     Dates: start: 19981231
  8. DAYPRO [Concomitant]
     Active Substance: OXAPROZIN
     Dosage: 600 MG, 2/D
     Dates: start: 19991001
  9. HYDROCHLOROTHIAZIDE. [Concomitant]
     Active Substance: HYDROCHLOROTHIAZIDE
     Dosage: 50 MG, DAILY (1/D)
     Dates: start: 20000114
  10. GUAIFENEX [Concomitant]
     Active Substance: GUAIFENESIN\PHENYLEPHRINE\PHENYLPROPANOLAMINE
     Indication: COUGH
     Dosage: 120 MG, 2/D
     Dates: start: 20010420
  11. IBUPROFEN. [Concomitant]
     Active Substance: IBUPROFEN
     Indication: PAIN
     Dosage: 800 MG, 3/D
     Dates: start: 20010219
  12. OXAPROZIN. [Concomitant]
     Active Substance: OXAPROZIN
     Indication: ARTHRALGIA
     Dosage: 600 MG, 2/D
     Dates: start: 20011108
  13. SEROQUEL [Concomitant]
     Active Substance: QUETIAPINE FUMARATE
     Dosage: 100 MG, EACH MORNING
     Dates: start: 20030205
  14. DIETHYLPROPION HYDROCHLORIDE. [Concomitant]
     Active Substance: DIETHYLPROPION HYDROCHLORIDE
     Dosage: 75 MG, EACH MORNING
     Dates: start: 20000522
  15. SEROQUEL [Concomitant]
     Active Substance: QUETIAPINE FUMARATE
     Dosage: 100 MG, 3/D
     Dates: start: 20020723
  16. LOTRISONE [Concomitant]
     Active Substance: BETAMETHASONE DIPROPIONATE\CLOTRIMAZOLE
     Dosage: 1 D/F, 2/D
     Dates: start: 19990302
  17. GENTAMICIN. [Concomitant]
     Active Substance: GENTAMICIN
     Indication: PRURITUS
     Dosage: 0.1 %, 3/D
     Dates: start: 19991007
  18. PENICILLIN VK [Concomitant]
     Active Substance: PENICILLIN V POTASSIUM
     Indication: INFECTION
     Dosage: 250 MG, 4/D
     Dates: start: 20010205
  19. NAPROXEN. [Concomitant]
     Active Substance: NAPROXEN
     Indication: PAIN
     Dosage: 550 MG, EVERY 8 HRS
     Dates: start: 20020626
  20. LAC-HYDRIN [Concomitant]
     Active Substance: AMMONIUM LACTATE
     Dosage: 12 %, 2/D
     Route: 061
     Dates: start: 20021008

REACTIONS (1)
  - General physical health deterioration [Unknown]
